FAERS Safety Report 26208635 (Version 1)
Quarter: 2025Q4

REPORT INFORMATION
  Report Type: Spontaneous
  Country: EU (occurrence: EU)
  Receive Date: 20251229
  Receipt Date: 20251229
  Transmission Date: 20260118
  Serious: Yes (Other)
  Sender: TEVA
  Company Number: None

PATIENT
  Age: 76 Year
  Sex: Female
  Weight: 89 kg

DRUGS (1)
  1. AMOXICILLIN\CLAVULANATE POTASSIUM [Suspect]
     Active Substance: AMOXICILLIN\CLAVULANATE POTASSIUM
     Indication: Gingivitis
     Dosage: 1 DF = 875 MG AMOXICILLIN IN THE FORM OF AMOXICILLIN TRIHYDRATE AND 125 MG CLAVULANIC ACID IN THE...
     Route: 048
     Dates: start: 20251202, end: 20251202

REACTIONS (4)
  - Choking [Recovered/Resolved]
  - Chest discomfort [Recovered/Resolved]
  - Acne [Not Recovered/Not Resolved]
  - Urticaria [Not Recovered/Not Resolved]

NARRATIVE: CASE EVENT DATE: 20251202
